FAERS Safety Report 25302490 (Version 1)
Quarter: 2025Q2

REPORT INFORMATION
  Report Type: Spontaneous
  Country: US (occurrence: US)
  Receive Date: 20250512
  Receipt Date: 20250512
  Transmission Date: 20250717
  Serious: Yes (Hospitalization, Other)
  Sender: NOVARTIS
  Company Number: US-002147023-NVSC2025US075007

PATIENT
  Age: 82 Year
  Sex: Male
  Weight: 123 kg

DRUGS (1)
  1. PROMACTA [Suspect]
     Active Substance: ELTROMBOPAG OLAMINE
     Indication: Immune thrombocytopenia
     Dosage: 50 MG, QD
     Route: 048
     Dates: start: 20250409

REACTIONS (8)
  - Urinary tract infection [Unknown]
  - Pneumonia aspiration [Unknown]
  - Hypoxia [Unknown]
  - Skin ulcer [Unknown]
  - Diabetes mellitus [Unknown]
  - Atrial fibrillation [Unknown]
  - Mental status changes [Unknown]
  - Aphasia [Unknown]

NARRATIVE: CASE EVENT DATE: 20250426
